FAERS Safety Report 16293852 (Version 1)
Quarter: 2019Q2

REPORT INFORMATION
  Report Type: Spontaneous
  Country: US (occurrence: US)
  Receive Date: 20190509
  Receipt Date: 20190509
  Transmission Date: 20190711
  Serious: No
  Sender: FDA-Public Use
  Company Number: US-ROCHE-2104999

PATIENT
  Sex: Male

DRUGS (1)
  1. ESBRIET [Suspect]
     Active Substance: PIRFENIDONE
     Indication: PRODUCT USED FOR UNKNOWN INDICATION
     Route: 065
     Dates: start: 20180201

REACTIONS (6)
  - Decreased appetite [Unknown]
  - Diarrhoea [Unknown]
  - Nausea [Unknown]
  - Productive cough [Unknown]
  - Dizziness [Unknown]
  - Rash [Unknown]
